FAERS Safety Report 7556634-9 (Version None)
Quarter: 2011Q2

REPORT INFORMATION
  Report Type: 
  Country: None (occurrence: None)
  Receive Date: 20110620
  Receipt Date: 20110614
  Transmission Date: 20111010
  Serious: Yes (Hospitalization)
  Sender: FDA-Public Use
  Company Number: US-ROXANE LABORATORIES, INC.-2011-RO-00825RO

PATIENT
  Age: 49 Year
  Sex: Female

DRUGS (2)
  1. METHADONE HCL [Suspect]
     Indication: PAIN
     Dosage: 40 MG
     Route: 048
     Dates: start: 20100402, end: 20110604
  2. SAPHRIS [Concomitant]
     Indication: PSYCHOTIC DISORDER

REACTIONS (5)
  - WITHDRAWAL SYNDROME [None]
  - PAIN [None]
  - DRUG LEVEL DECREASED [None]
  - PNEUMONIA [None]
  - PSYCHOTIC DISORDER [None]
